FAERS Safety Report 4419732-4 (Version None)
Quarter: 2004Q3

REPORT INFORMATION
  Report Type: 
  Country: None (occurrence: None)
  Receive Date: 20040804
  Receipt Date: 20040713
  Transmission Date: 20050211
  Serious: Yes (Hospitalization)
  Sender: FDA-Public Use
  Company Number: US_0407104221

PATIENT
  Age: 36 Year
  Weight: 91 kg

DRUGS (15)
  1. GEMCITABINE HYDROCHLORIDE-IV (GEMCITABINE) [Suspect]
     Indication: BREAST CANCER METASTATIC
     Dosage: 1000 MG/M2 OTHER
     Dates: start: 20040623
  2. DOCETAXEL [Suspect]
     Indication: BREAST CANCER METASTATIC
     Dosage: 75 MG/M2 OTHER
     Dates: start: 20040623
  3. NEUPOGEN [Concomitant]
  4. CEFTIN [Concomitant]
  5. CLARITIN [Concomitant]
  6. DIFLUCAN [Concomitant]
  7. MAALOX [Concomitant]
  8. LIDOCAINE [Concomitant]
  9. OXYCODONE HCL [Concomitant]
  10. ZOFRAN [Concomitant]
  11. DILAUDID [Concomitant]
  12. AMERGE [Concomitant]
  13. NAPROSYN (NAPROXEN MEPHA) [Concomitant]
  14. VIOXX [Concomitant]
  15. VALTREX [Concomitant]

REACTIONS (20)
  - ABDOMINAL PAIN [None]
  - ALANINE AMINOTRANSFERASE INCREASED [None]
  - ASPARTATE AMINOTRANSFERASE INCREASED [None]
  - BLOOD ALKALINE PHOSPHATASE INCREASED [None]
  - CHILLS [None]
  - CLOSTRIDIUM COLITIS [None]
  - CULTURE URINE POSITIVE [None]
  - EXOSTOSIS [None]
  - FEBRILE NEUTROPENIA [None]
  - HAEMOGLOBIN DECREASED [None]
  - HEADACHE [None]
  - HERPANGINA [None]
  - LIPASE INCREASED [None]
  - LYMPHOCYTE PERCENTAGE INCREASED [None]
  - MUCOSAL INFLAMMATION [None]
  - NAUSEA [None]
  - ORAL CANDIDIASIS [None]
  - PLATELET COUNT DECREASED [None]
  - SPINAL OSTEOARTHRITIS [None]
  - WHITE BLOOD CELL COUNT INCREASED [None]
